FAERS Safety Report 7759403-X (Version None)
Quarter: 2011Q3

REPORT INFORMATION
  Report Type: 
  Country: None (occurrence: None)
  Receive Date: 20110919
  Receipt Date: 20110912
  Transmission Date: 20111222
  Serious: Yes (Hospitalization, Other)
  Sender: FDA-Public Use
  Company Number: US-JNJFOC-20100703621

PATIENT
  Sex: Female

DRUGS (4)
  1. LEVAQUIN [Suspect]
     Indication: URINARY TRACT INFECTION
     Route: 048
     Dates: start: 20080901
  2. CIPROFLOXACIN [Suspect]
     Indication: URINARY TRACT INFECTION
     Route: 065
  3. LEXAPRO [Concomitant]
     Indication: ANTIDEPRESSANT THERAPY
     Dates: start: 20040101
  4. LEXAPRO [Concomitant]
     Indication: ANXIETY
     Dates: start: 20040101

REACTIONS (3)
  - JOINT SWELLING [None]
  - TENDONITIS [None]
  - EPICONDYLITIS [None]
